FAERS Safety Report 4627567-2 (Version None)
Quarter: 2005Q2

REPORT INFORMATION
  Report Type: 
  Country: None (occurrence: None)
  Receive Date: 20050405
  Receipt Date: 20050324
  Transmission Date: 20051028
  Serious: Yes (Hospitalization)
  Sender: FDA-Public Use
  Company Number: 0104-2167

PATIENT
  Sex: Male

DRUGS (1)
  1. ADVICOR [Suspect]
     Dosage: 1 TABLET (S) PO
     Route: 048

REACTIONS (3)
  - DRUG INEFFECTIVE [None]
  - FLUSHING [None]
  - GENERALISED OEDEMA [None]
